FAERS Safety Report 7677193-6 (Version None)
Quarter: 2011Q3

REPORT INFORMATION
  Report Type: 
  Country: None (occurrence: None)
  Receive Date: 20110811
  Receipt Date: 20110727
  Transmission Date: 20111222
  Serious: No
  Sender: FDA-Public Use
  Company Number: US-B.I. PHARMACEUTICALS,INC./RIDGEFIELD-2011-BP-17276BP

PATIENT
  Age: 81 Year
  Sex: Female
  Weight: 91.63 kg

DRUGS (11)
  1. LABETALOL HCL [Concomitant]
     Dates: start: 20110204
  2. FLUNISOLIDE [Concomitant]
     Dates: start: 20080512
  3. FUROSEMIDE [Concomitant]
     Dosage: 40 MG
     Dates: start: 20110622
  4. QUALAQUIN [Concomitant]
     Dates: start: 20100824
  5. ULORIC [Concomitant]
     Dosage: 40 MG
     Dates: start: 20101210
  6. PRADAXA [Suspect]
     Indication: ATRIAL FIBRILLATION
     Dosage: 150 MG
     Dates: start: 20110603, end: 20110619
  7. LOSARTAN POTASSIUM [Concomitant]
     Dosage: 100 MG
     Dates: start: 20110319
  8. VITAMIN D [Concomitant]
     Dosage: 2000 U
     Dates: start: 20101110
  9. HYDROCODONE BITARTRATE AND ACETAMINOPHEN [Concomitant]
     Dates: start: 20110605
  10. POLYETHYLENE GLYCOL [Concomitant]
     Dosage: 17 G
     Dates: start: 20110605
  11. GABAPENTIN [Concomitant]
     Dates: start: 20100819

REACTIONS (3)
  - JOINT SWELLING [None]
  - OEDEMA PERIPHERAL [None]
  - ARTHRALGIA [None]
